FAERS Safety Report 5262769-6 (Version None)
Quarter: 2007Q1

REPORT INFORMATION
  Report Type: 
  Country: None (occurrence: None)
  Receive Date: 20070312
  Receipt Date: 20070307
  Transmission Date: 20070707
  Serious: Yes (Hospitalization)
  Sender: FDA-Public Use
  Company Number: US-GLAXOSMITHKLINE-A0642189A

PATIENT
  Age: 90 Year
  Sex: Male

DRUGS (12)
  1. ADVAIR DISKUS 100/50 [Suspect]
     Indication: ASTHMA
     Route: 055
  2. ALBUTEROL [Concomitant]
  3. ZOCOR [Concomitant]
  4. FOLIC ACID [Concomitant]
  5. INDERAL [Concomitant]
  6. UNSPECIFIED MEDICATION [Concomitant]
  7. TERAZOSIN HCL [Concomitant]
  8. ASPIRIN [Concomitant]
  9. CENTRUM SILVER [Concomitant]
  10. MAGNESIUM OXIDE [Concomitant]
  11. VITAMIN E [Concomitant]
  12. OMEPRAZOLE [Concomitant]

REACTIONS (3)
  - FUNGAL OESOPHAGITIS [None]
  - PNEUMONIA ASPIRATION [None]
  - PRODUCTIVE COUGH [None]
